APPROVED DRUG PRODUCT: HEPARIN SODIUM
Active Ingredient: HEPARIN SODIUM
Strength: 5,000 UNITS/ML
Dosage Form/Route: INJECTABLE;INJECTION
Application: A205323 | Product #001 | TE Code: AP
Applicant: GLAND PHARMA LTD
Approved: Feb 6, 2017 | RLD: No | RS: No | Type: RX